FAERS Safety Report 21607991 (Version 2)
Quarter: 2022Q4

REPORT INFORMATION
  Report Type: Report from Study
  Country: US (occurrence: US)
  Receive Date: 20221117
  Receipt Date: 20221210
  Transmission Date: 20230112
  Serious: No
  Sender: FDA-Public Use
  Company Number: US-002147023-NVSC2022US258431

PATIENT
  Age: 67 Year
  Sex: Male

DRUGS (1)
  1. LEQVIO [Suspect]
     Active Substance: INCLISIRAN SODIUM
     Indication: Product used for unknown indication
     Dosage: UNK
     Route: 058
     Dates: start: 20221102

REACTIONS (5)
  - Arthralgia [Recovering/Resolving]
  - Abdominal discomfort [Recovering/Resolving]
  - Nausea [Unknown]
  - Malaise [Unknown]
  - Vertigo [Unknown]

NARRATIVE: CASE EVENT DATE: 20221102
